FAERS Safety Report 12228230 (Version 1)
Quarter: 2016Q1

REPORT INFORMATION
  Report Type: Spontaneous
  Country: US (occurrence: None)
  Receive Date: 20160330
  Receipt Date: 20160330
  Transmission Date: 20160526
  Serious: Yes (Hospitalization)
  Sender: FDA-Public Use
  Company Number: None

PATIENT
  Age: 70 Year
  Sex: Male
  Weight: 88.2 kg

DRUGS (1)
  1. NAFCILLIN [Suspect]
     Active Substance: NAFCILLIN\NAFCILLIN SODIUM
     Dosage: 2 GM OTHER IV
     Route: 042
     Dates: start: 20151218, end: 20151230

REACTIONS (2)
  - Renal impairment [None]
  - Tubulointerstitial nephritis [None]

NARRATIVE: CASE EVENT DATE: 20151231
